FAERS Safety Report 10163130 (Version 1)
Quarter: 2014Q2

REPORT INFORMATION
  Report Type: Spontaneous
  Country: US (occurrence: US)
  Receive Date: 20140509
  Receipt Date: 20140509
  Transmission Date: 20141212
  Serious: Yes (Hospitalization)
  Sender: FDA-Public Use
  Company Number: US-GLAXOSMITHKLINE-A1071758A

PATIENT
  Age: 56 Year
  Sex: Female

DRUGS (2)
  1. ADVAIR [Suspect]
     Indication: EMPHYSEMA
     Dosage: 1PUFF VARIABLE DOSE
     Route: 055
  2. UNKNOWN MEDICATION [Concomitant]

REACTIONS (7)
  - Lung disorder [Unknown]
  - Dyspnoea [Unknown]
  - Fatigue [Unknown]
  - Emotional disorder [Unknown]
  - Dyspnoea exertional [Unknown]
  - Chest pain [Unknown]
  - Drug administration error [Unknown]
